FAERS Safety Report 22629485 (Version 1)
Quarter: 2023Q2

REPORT INFORMATION
  Report Type: Spontaneous
  Country: US (occurrence: US)
  Receive Date: 20230622
  Receipt Date: 20230622
  Transmission Date: 20230721
  Serious: No
  Sender: FDA-Public Use
  Company Number: US-SA-SAC20230616001303

PATIENT
  Age: 61 Year
  Sex: Female

DRUGS (1)
  1. DUPIXENT [Suspect]
     Active Substance: DUPILUMAB
     Indication: Asthma
     Dosage: 300MG, FREQUENCY: OTHER
     Route: 058
     Dates: start: 2019

REACTIONS (4)
  - Asthma [Unknown]
  - Chest discomfort [Unknown]
  - Throat tightness [Unknown]
  - Rash [Unknown]

NARRATIVE: CASE EVENT DATE: 20190101
